FAERS Safety Report 15067115 (Version 3)
Quarter: 2018Q3

REPORT INFORMATION
  Report Type: Spontaneous
  Country: JP (occurrence: JP)
  Receive Date: 20180626
  Receipt Date: 20180725
  Transmission Date: 20181010
  Serious: Yes (Hospitalization, Other)
  Sender: FDA-Public Use
  Company Number: JP-GLAXOSMITHKLINE-JP2018JPN109656

PATIENT
  Age: 6 Decade
  Sex: Male

DRUGS (9)
  1. LAMICTAL [Suspect]
     Active Substance: LAMOTRIGINE
     Indication: BIPOLAR DISORDER
     Dosage: 200 MG, BID
     Route: 048
     Dates: end: 20180611
  2. ABILIFY [Suspect]
     Active Substance: ARIPIPRAZOLE
     Dosage: 12 MG, 1D
     Route: 048
     Dates: end: 20180611
  3. SERTRALINE OD [Concomitant]
     Dosage: 100 MG, 1D
     Dates: end: 20180611
  4. ABILIFY [Suspect]
     Active Substance: ARIPIPRAZOLE
     Dosage: 6 MG, 1D
     Route: 048
     Dates: start: 20180619, end: 20180621
  5. QUETIAPINE. [Suspect]
     Active Substance: QUETIAPINE
     Dosage: 300 MG, 1D
     Route: 048
     Dates: start: 20180619, end: 20180621
  6. ROZEREM [Concomitant]
     Active Substance: RAMELTEON
     Dosage: UNK
  7. QUETIAPINE. [Suspect]
     Active Substance: QUETIAPINE
     Dosage: 300 MG, 1D
     Route: 048
     Dates: end: 20180611
  8. LAMICTAL [Suspect]
     Active Substance: LAMOTRIGINE
     Dosage: 25 MG, 1D
     Route: 048
     Dates: start: 20180619, end: 20180621
  9. ROZEREM [Concomitant]
     Active Substance: RAMELTEON
     Dosage: 8 MG, 1D
     Dates: end: 20180611

REACTIONS (2)
  - Neuroleptic malignant syndrome [Unknown]
  - Restlessness [Recovered/Resolved]

NARRATIVE: CASE EVENT DATE: 20180611
